FAERS Safety Report 5367710-3 (Version None)
Quarter: 2007Q2

REPORT INFORMATION
  Report Type: 
  Country: None (occurrence: None)
  Receive Date: 20070622
  Receipt Date: 20070320
  Transmission Date: 20071010
  Serious: No
  Sender: FDA-Public Use
  Company Number: US-ASTRAZENECA-2007UW05336

PATIENT
  Age: 68 Year
  Sex: Female
  Weight: 47.7 kg

DRUGS (7)
  1. BUDESONIDE [Suspect]
     Indication: EMPHYSEMA
     Route: 055
     Dates: start: 20060401
  2. XOPENEX [Suspect]
     Indication: EMPHYSEMA
     Dosage: 1.25 MG/3 ML Q12H
     Route: 055
     Dates: start: 20060401, end: 20070101
  3. XOPENEX [Suspect]
     Dosage: 0.63 MG/3 ML
     Route: 055
     Dates: start: 20070101
  4. IPRATROPIUM BROMIDE [Suspect]
     Indication: EMPHYSEMA
     Route: 055
     Dates: start: 20060401
  5. VERAPAMIL [Concomitant]
  6. PAMELOR [Concomitant]
  7. VITAMIN CAP [Concomitant]

REACTIONS (1)
  - TREMOR [None]
